FAERS Safety Report 15248280 (Version 1)
Quarter: 2018Q3

REPORT INFORMATION
  Report Type: Spontaneous
  Country: US (occurrence: US)
  Receive Date: 20180715
  Receipt Date: 20180715
  Transmission Date: 20181010
  Serious: Yes (Hospitalization)
  Sender: FDA-Public Use
  Company Number: None

PATIENT
  Age: 68 Year
  Sex: Female
  Weight: 78.1 kg

DRUGS (2)
  1. GEMCITABINE HYDROCHLORIDE. [Suspect]
     Active Substance: GEMCITABINE HYDROCHLORIDE
     Dates: end: 20180615
  2. AMIODARONE [Concomitant]
     Active Substance: AMIODARONE

REACTIONS (12)
  - Loss of personal independence in daily activities [None]
  - Cough [None]
  - Fatigue [None]
  - White blood cell count increased [None]
  - Blood pressure decreased [None]
  - Dyspnoea [None]
  - Rales [None]
  - Sepsis [None]
  - Pneumonia [None]
  - Rhonchi [None]
  - Crepitations [None]
  - Hypoxia [None]

NARRATIVE: CASE EVENT DATE: 20180701
